FAERS Safety Report 7420173-6 (Version None)
Quarter: 2011Q2

REPORT INFORMATION
  Report Type: 
  Country: None (occurrence: None)
  Receive Date: 20110418
  Receipt Date: 20110406
  Transmission Date: 20111010
  Serious: Yes (Hospitalization)
  Sender: FDA-Public Use
  Company Number: US-SANOFI-AVENTIS-2011SA021834

PATIENT
  Age: 76 Year
  Sex: Male

DRUGS (9)
  1. BENAZEPRIL HYDROCHLORIDE [Concomitant]
  2. METOPROLOL [Concomitant]
     Dates: end: 20110101
  3. SIMVASTATIN [Concomitant]
  4. METFORMIN HYDROCHLORIDE [Concomitant]
  5. LEVOXYL [Concomitant]
  6. MULTAQ [Suspect]
     Indication: ATRIAL FIBRILLATION
     Route: 048
     Dates: start: 20110101
  7. WARFARIN [Concomitant]
  8. METOPROLOL [Concomitant]
     Dates: start: 20110101
  9. AMLODIPINE [Concomitant]

REACTIONS (6)
  - ATRIAL FIBRILLATION [None]
  - NAUSEA [None]
  - PULSE ABNORMAL [None]
  - DIZZINESS [None]
  - HYPERHIDROSIS [None]
  - DIARRHOEA [None]
